FAERS Safety Report 8269764-3 (Version None)
Quarter: 2012Q2

REPORT INFORMATION
  Report Type: 
  Country: None (occurrence: None)
  Receive Date: 20120406
  Receipt Date: 20120322
  Transmission Date: 20120825
  Serious: Yes (Congenital Anomaly, Other)
  Sender: FDA-Public Use
  Company Number: 20120184

PATIENT
  Sex: Female

DRUGS (4)
  1. LAMOTRGINE [Suspect]
     Indication: AFFECTIVE DISORDER
     Dosage: 600 MG,
  2. LAMOTRGINE [Suspect]
     Indication: EPILEPSY
     Dosage: 600 MG,
  3. LEVETIRACETAM [Suspect]
     Indication: EPILEPSY
     Dosage: 2000 MG,
  4. LEVETIRACETAM [Suspect]
     Indication: AFFECTIVE DISORDER
     Dosage: 2000 MG,

REACTIONS (1)
  - MATERNAL EXPOSURE DURING PREGNANCY [None]
